FAERS Safety Report 10264620 (Version 1)
Quarter: 2014Q2

REPORT INFORMATION
  Report Type: Report from Study
  Country: LB (occurrence: LB)
  Receive Date: 20140627
  Receipt Date: 20140627
  Transmission Date: 20141212
  Serious: Yes (Death, Hospitalization)
  Sender: FDA-Public Use
  Company Number: PHHY2014LB078934

PATIENT
  Age: 68 Year
  Sex: Male

DRUGS (7)
  1. OSTEOCARE [Concomitant]
     Dosage: 1 DF, UNK
     Route: 048
  2. MG [Concomitant]
     Dosage: 1 DF, UNK
     Route: 048
  3. ZALDIAR [Concomitant]
     Dosage: 1 DF, UNK
     Route: 048
  4. GLUCOPHAGE [Concomitant]
     Dosage: 850 MG, UNK
     Route: 048
  5. CONCOR [Concomitant]
     Dosage: 5 MG, UNK
     Route: 048
  6. ANTIARRHYTHMIC AGENTS [Concomitant]
  7. ACLASTA [Suspect]
     Dosage: UNK
     Route: 042

REACTIONS (3)
  - Respiratory arrest [Fatal]
  - Loss of consciousness [Unknown]
  - Dyspnoea [Unknown]
